FAERS Safety Report 25087019 (Version 1)
Quarter: 2025Q1

REPORT INFORMATION
  Report Type: Spontaneous
  Country: CA (occurrence: CA)
  Receive Date: 20250318
  Receipt Date: 20250318
  Transmission Date: 20250409
  Serious: Yes (Death, Other)
  Sender: Haleon PLC
  Company Number: CA-002147023-NVSC2025CA042010

PATIENT
  Age: 40 Year
  Sex: Female
  Weight: 73 kg

DRUGS (99)
  1. PANADOL [Suspect]
     Active Substance: ACETAMINOPHEN
     Indication: Product used for unknown indication
     Route: 065
  2. INFLIXIMAB [Suspect]
     Active Substance: INFLIXIMAB
     Indication: Rheumatoid arthritis
     Route: 050
  3. INFLIXIMAB [Suspect]
     Active Substance: INFLIXIMAB
     Route: 050
  4. SULFASALAZINE [Suspect]
     Active Substance: SULFASALAZINE
     Indication: Rheumatoid arthritis
     Dosage: 300 MG, QD
     Route: 050
  5. SULFASALAZINE [Suspect]
     Active Substance: SULFASALAZINE
     Dosage: 1000 MG, BID
     Route: 050
  6. SULFASALAZINE [Suspect]
     Active Substance: SULFASALAZINE
     Dosage: 1 DOSAGE FORM, BID
     Route: 050
  7. SULFASALAZINE [Suspect]
     Active Substance: SULFASALAZINE
     Route: 065
  8. SULFASALAZINE [Suspect]
     Active Substance: SULFASALAZINE
     Route: 050
  9. SULFASALAZINE [Suspect]
     Active Substance: SULFASALAZINE
     Route: 050
  10. SULFASALAZINE [Suspect]
     Active Substance: SULFASALAZINE
     Route: 065
  11. SULFASALAZINE [Suspect]
     Active Substance: SULFASALAZINE
     Route: 050
  12. SULFASALAZINE [Suspect]
     Active Substance: SULFASALAZINE
     Dosage: 1 G, BID
     Route: 050
  13. SULFASALAZINE [Suspect]
     Active Substance: SULFASALAZINE
     Route: 050
  14. SULFASALAZINE [Suspect]
     Active Substance: SULFASALAZINE
     Route: 050
  15. SULFASALAZINE [Suspect]
     Active Substance: SULFASALAZINE
     Route: 065
  16. METHYLPREDNISOLONE [Suspect]
     Active Substance: METHYLPREDNISOLONE
     Indication: Product used for unknown indication
     Route: 065
  17. XELJANZ [Suspect]
     Active Substance: TOFACITINIB CITRATE
     Indication: Rheumatoid arthritis
     Dosage: 5 MG, BID
     Route: 050
  18. XELJANZ [Suspect]
     Active Substance: TOFACITINIB CITRATE
     Route: 050
  19. XELJANZ [Suspect]
     Active Substance: TOFACITINIB CITRATE
     Dosage: 5 MG, BID
     Route: 050
  20. XELJANZ [Suspect]
     Active Substance: TOFACITINIB CITRATE
     Dosage: 10 MG, QD
     Route: 050
  21. XELJANZ [Suspect]
     Active Substance: TOFACITINIB CITRATE
     Dosage: 5 MG, BID
     Route: 050
  22. XELJANZ [Suspect]
     Active Substance: TOFACITINIB CITRATE
     Dosage: 240 MG, QD
     Route: 065
  23. XELJANZ [Suspect]
     Active Substance: TOFACITINIB CITRATE
     Dosage: 10 MG, QD
     Route: 050
  24. ENBREL [Suspect]
     Active Substance: ETANERCEPT
     Indication: Rheumatoid arthritis
     Route: 065
  25. ENBREL [Suspect]
     Active Substance: ETANERCEPT
     Route: 050
  26. ENBREL [Suspect]
     Active Substance: ETANERCEPT
     Route: 050
  27. ENBREL [Suspect]
     Active Substance: ETANERCEPT
     Dosage: 50 MG, QW
     Route: 050
  28. ENBREL [Suspect]
     Active Substance: ETANERCEPT
     Route: 050
  29. ENBREL [Suspect]
     Active Substance: ETANERCEPT
     Route: 050
  30. ERENUMAB-AOOE [Suspect]
     Active Substance: ERENUMAB-AOOE
     Indication: Migraine
     Route: 065
  31. METHOTREXATE SODIUM [Suspect]
     Active Substance: METHOTREXATE SODIUM
     Indication: Rheumatoid arthritis
     Dosage: 20 MG, QD
     Route: 050
  32. METHOTREXATE SODIUM [Suspect]
     Active Substance: METHOTREXATE SODIUM
     Dosage: 25 MG, QW
     Route: 050
  33. METHOTREXATE SODIUM [Suspect]
     Active Substance: METHOTREXATE SODIUM
     Dosage: 20 MG, QD
     Route: 050
  34. METHOTREXATE SODIUM [Suspect]
     Active Substance: METHOTREXATE SODIUM
     Route: 050
  35. METHOTREXATE SODIUM [Suspect]
     Active Substance: METHOTREXATE SODIUM
     Dosage: 15 MG, QW
     Route: 050
  36. METHOTREXATE SODIUM [Suspect]
     Active Substance: METHOTREXATE SODIUM
     Route: 050
  37. METHOTREXATE SODIUM [Suspect]
     Active Substance: METHOTREXATE SODIUM
     Dosage: 25 MG, QW
     Route: 050
  38. METHOTREXATE SODIUM [Suspect]
     Active Substance: METHOTREXATE SODIUM
     Dosage: 20 MG, QW
     Route: 050
  39. METHOTREXATE SODIUM [Suspect]
     Active Substance: METHOTREXATE SODIUM
     Dosage: 25 MG, QW
     Route: 050
  40. ADALIMUMAB [Suspect]
     Active Substance: ADALIMUMAB
     Indication: Product used for unknown indication
     Route: 050
  41. ERELZI [Suspect]
     Active Substance: ETANERCEPT-SZZS
     Indication: Product used for unknown indication
     Route: 065
  42. ALENDRONATE SODIUM [Suspect]
     Active Substance: ALENDRONATE SODIUM
     Indication: Product used for unknown indication
     Route: 065
  43. COSENTYX [Suspect]
     Active Substance: SECUKINUMAB
     Indication: Product used for unknown indication
     Route: 065
  44. DICLOFENAC SODIUM [Suspect]
     Active Substance: DICLOFENAC SODIUM
     Indication: Product used for unknown indication
     Route: 065
  45. ACTEMRA [Suspect]
     Active Substance: TOCILIZUMAB
     Indication: Rheumatoid arthritis
     Route: 050
  46. ACTEMRA [Suspect]
     Active Substance: TOCILIZUMAB
     Route: 065
  47. ACTEMRA [Suspect]
     Active Substance: TOCILIZUMAB
     Route: 050
  48. ACTEMRA [Suspect]
     Active Substance: TOCILIZUMAB
     Route: 065
  49. ACTEMRA [Suspect]
     Active Substance: TOCILIZUMAB
     Route: 050
  50. ACTEMRA [Suspect]
     Active Substance: TOCILIZUMAB
     Route: 065
  51. ACTEMRA [Suspect]
     Active Substance: TOCILIZUMAB
     Route: 050
  52. ACTEMRA [Suspect]
     Active Substance: TOCILIZUMAB
     Route: 050
  53. ACTEMRA [Suspect]
     Active Substance: TOCILIZUMAB
     Route: 050
  54. ACTEMRA [Suspect]
     Active Substance: TOCILIZUMAB
     Route: 050
  55. ACTEMRA [Suspect]
     Active Substance: TOCILIZUMAB
     Route: 050
  56. ACTEMRA [Suspect]
     Active Substance: TOCILIZUMAB
     Dosage: 25 MG, QW
     Route: 050
  57. ACTEMRA [Suspect]
     Active Substance: TOCILIZUMAB
     Route: 050
  58. ACTEMRA [Suspect]
     Active Substance: TOCILIZUMAB
     Route: 050
  59. ACTEMRA [Suspect]
     Active Substance: TOCILIZUMAB
     Route: 065
  60. LEFLUNOMIDE [Suspect]
     Active Substance: LEFLUNOMIDE
     Indication: Rheumatoid arthritis
     Route: 050
  61. LEFLUNOMIDE [Suspect]
     Active Substance: LEFLUNOMIDE
     Route: 050
  62. RITUXIMAB [Suspect]
     Active Substance: RITUXIMAB
     Indication: Rheumatoid arthritis
     Route: 065
  63. RITUXIMAB [Suspect]
     Active Substance: RITUXIMAB
     Dosage: 2 G, QD
     Route: 050
  64. RITUXIMAB [Suspect]
     Active Substance: RITUXIMAB
     Route: 050
  65. RITUXIMAB [Suspect]
     Active Substance: RITUXIMAB
     Dosage: 1 G, BID
     Route: 050
  66. RITUXIMAB [Suspect]
     Active Substance: RITUXIMAB
     Dosage: 2000 MG, QD
     Route: 050
  67. RITUXIMAB [Suspect]
     Active Substance: RITUXIMAB
     Route: 050
  68. RITUXIMAB [Suspect]
     Active Substance: RITUXIMAB
     Dosage: 2 G, QD
     Route: 050
  69. RITUXIMAB [Suspect]
     Active Substance: RITUXIMAB
     Dosage: 2000 MG, QD
     Route: 050
  70. RITUXIMAB [Suspect]
     Active Substance: RITUXIMAB
     Dosage: 1000 MG, BID
     Route: 050
  71. RITUXIMAB [Suspect]
     Active Substance: RITUXIMAB
     Route: 050
  72. RITUXIMAB [Suspect]
     Active Substance: RITUXIMAB
     Route: 050
  73. RITUXIMAB [Suspect]
     Active Substance: RITUXIMAB
     Dosage: 2 G, QD
     Route: 050
  74. RITUXIMAB [Suspect]
     Active Substance: RITUXIMAB
     Dosage: 1000 MG, BID
     Route: 065
  75. RITUXIMAB [Suspect]
     Active Substance: RITUXIMAB
     Dosage: 1 G, BID
     Route: 050
  76. RITUXIMAB [Suspect]
     Active Substance: RITUXIMAB
     Dosage: 1000 MG, BID
     Route: 065
  77. RITUXIMAB [Suspect]
     Active Substance: RITUXIMAB
     Route: 050
  78. RITUXIMAB [Suspect]
     Active Substance: RITUXIMAB
     Dosage: 1 G, BID
     Route: 050
  79. RITUXIMAB [Suspect]
     Active Substance: RITUXIMAB
     Route: 050
  80. RITUXIMAB [Suspect]
     Active Substance: RITUXIMAB
     Route: 050
  81. RITUXIMAB [Suspect]
     Active Substance: RITUXIMAB
     Dosage: 1000 MG, BID
     Route: 050
  82. RITUXIMAB [Suspect]
     Active Substance: RITUXIMAB
     Route: 050
  83. RITUXIMAB [Suspect]
     Active Substance: RITUXIMAB
     Dosage: 1 G, BID
     Route: 065
  84. RITUXIMAB [Suspect]
     Active Substance: RITUXIMAB
     Dosage: 2000 MG, QD
     Route: 050
  85. RITUXIMAB [Suspect]
     Active Substance: RITUXIMAB
     Dosage: 2000 MG, QD
     Route: 050
  86. RITUXIMAB [Suspect]
     Active Substance: RITUXIMAB
     Dosage: 2 G, QD
     Route: 050
  87. RITUXIMAB [Suspect]
     Active Substance: RITUXIMAB
     Route: 050
  88. RITUXIMAB [Suspect]
     Active Substance: RITUXIMAB
     Route: 065
  89. RITUXIMAB [Suspect]
     Active Substance: RITUXIMAB
     Dosage: 1 G, QD
     Route: 050
  90. RITUXIMAB [Suspect]
     Active Substance: RITUXIMAB
     Dosage: 1 G, BID
     Route: 050
  91. RITUXIMAB [Suspect]
     Active Substance: RITUXIMAB
     Route: 050
  92. RITUXIMAB [Suspect]
     Active Substance: RITUXIMAB
     Dosage: 1 G, BID
     Route: 065
  93. RITUXIMAB [Suspect]
     Active Substance: RITUXIMAB
     Route: 050
  94. RITUXIMAB [Suspect]
     Active Substance: RITUXIMAB
     Route: 050
  95. RITUXIMAB [Suspect]
     Active Substance: RITUXIMAB
     Dosage: 2000 MG, QD
     Route: 050
  96. RITUXIMAB [Suspect]
     Active Substance: RITUXIMAB
     Dosage: 2000 MG, QD
     Route: 050
  97. SULFASALAZINE [Suspect]
     Active Substance: SULFASALAZINE
     Indication: Rheumatoid arthritis
     Route: 065
  98. SULFASALAZINE [Suspect]
     Active Substance: SULFASALAZINE
     Route: 050
  99. OTEZLA [Suspect]
     Active Substance: APREMILAST
     Indication: Rheumatoid arthritis
     Dosage: 6 MG, QD
     Route: 065

REACTIONS (75)
  - Alopecia [Fatal]
  - Hypercholesterolaemia [Fatal]
  - Sleep disorder [Fatal]
  - Gait inability [Fatal]
  - Depression [Fatal]
  - Pain in extremity [Fatal]
  - Headache [Fatal]
  - Gastrointestinal disorder [Fatal]
  - Migraine [Fatal]
  - Fibromyalgia [Fatal]
  - Hypertension [Fatal]
  - Helicobacter infection [Fatal]
  - Osteoarthritis [Fatal]
  - Pneumonia [Fatal]
  - Gastrooesophageal reflux disease [Fatal]
  - Infusion related reaction [Fatal]
  - Hand deformity [Fatal]
  - Bursitis [Fatal]
  - Systemic lupus erythematosus [Fatal]
  - Blister [Fatal]
  - Condition aggravated [Fatal]
  - Rheumatic fever [Fatal]
  - Psoriatic arthropathy [Fatal]
  - Obesity [Fatal]
  - Coeliac disease [Fatal]
  - Synovitis [Fatal]
  - Folliculitis [Fatal]
  - Impaired healing [Fatal]
  - Lung disorder [Fatal]
  - Mobility decreased [Fatal]
  - Glossodynia [Fatal]
  - Night sweats [Fatal]
  - Peripheral swelling [Fatal]
  - Maternal exposure during pregnancy [Fatal]
  - Stomatitis [Fatal]
  - Malaise [Fatal]
  - Pericarditis [Fatal]
  - Hepatitis [Fatal]
  - Dry mouth [Fatal]
  - Confusional state [Fatal]
  - Lower respiratory tract infection [Fatal]
  - Facet joint syndrome [Fatal]
  - Irritable bowel syndrome [Fatal]
  - Drug hypersensitivity [Fatal]
  - Blepharospasm [Fatal]
  - Muscle spasms [Fatal]
  - Duodenal ulcer perforation [Fatal]
  - Insomnia [Fatal]
  - Onychomadesis [Fatal]
  - Joint range of motion decreased [Fatal]
  - Drug-induced liver injury [Fatal]
  - Back injury [Fatal]
  - Muscular weakness [Fatal]
  - Fall [Fatal]
  - Nasopharyngitis [Fatal]
  - Asthenia [Fatal]
  - Grip strength decreased [Fatal]
  - Hypersensitivity [Fatal]
  - Neck pain [Fatal]
  - General physical health deterioration [Fatal]
  - Musculoskeletal stiffness [Fatal]
  - Lip dry [Fatal]
  - Injection site reaction [Fatal]
  - Onychomycosis [Fatal]
  - Dizziness [Fatal]
  - Injury [Fatal]
  - Rash [Fatal]
  - Muscle injury [Fatal]
  - Inflammation [Fatal]
  - Pemphigus [Fatal]
  - Breast cancer stage III [Fatal]
  - Memory impairment [Fatal]
  - Hypoaesthesia [Fatal]
  - Finger deformity [Fatal]
  - Epilepsy [Fatal]
